FAERS Safety Report 6618782-7 (Version None)
Quarter: 2010Q1

REPORT INFORMATION
  Report Type: 
  Country: None (occurrence: None)
  Receive Date: 20100305
  Receipt Date: 20100305
  Transmission Date: 20100710
  Serious: Yes (Death, Life-Threatening, Hospitalization, Disabling, Other)
  Sender: FDA-Public Use
  Company Number: None

PATIENT
  Sex: Female
  Weight: 88.4514 kg

DRUGS (2)
  1. FENTANYL [Suspect]
     Indication: ENDOTRACHEAL INTUBATION
     Dosage: 50 MCG 24 HOURS IV
     Route: 042
  2. FENTANYL [Suspect]
     Indication: RESPIRATORY ARREST
     Dosage: 50 MCG 24 HOURS IV
     Route: 042

REACTIONS (5)
  - APLASTIC ANAEMIA [None]
  - BLOOD PRESSURE DECREASED [None]
  - IMMUNE SYSTEM DISORDER [None]
  - RENAL FAILURE [None]
  - RESPIRATORY ARREST [None]
